FAERS Safety Report 5053465-9 (Version None)
Quarter: 2006Q3

REPORT INFORMATION
  Report Type: 
  Country: None (occurrence: None)
  Receive Date: 20060712
  Receipt Date: 20060703
  Transmission Date: 20061208
  Serious: Yes (Other)
  Sender: FDA-Public Use
  Company Number: 2006080907

PATIENT
  Age: 73 Year
  Sex: Male

DRUGS (5)
  1. ALDACTONE [Suspect]
     Dosage: SEE IMAGE
     Route: 048
     Dates: start: 20060529, end: 20060608
  2. ALDACTONE [Suspect]
     Dosage: SEE IMAGE
     Route: 048
     Dates: start: 20060609, end: 20060615
  3. ALDACTONE [Suspect]
     Dosage: SEE IMAGE
     Route: 048
     Dates: start: 20060616, end: 20060623
  4. LASIX [Concomitant]
  5. WARFARIN SODIUM [Concomitant]

REACTIONS (5)
  - DEAFNESS [None]
  - OEDEMA [None]
  - STRESS [None]
  - SWELLING [None]
  - WEIGHT DECREASED [None]
